FAERS Safety Report 9233449 (Version 7)
Quarter: 2013Q2

REPORT INFORMATION
  Report Type: Report from Study
  Country: KR (occurrence: KR)
  Receive Date: 20130416
  Receipt Date: 20130517
  Transmission Date: 20140414
  Serious: Yes (Death, Hospitalization)
  Sender: FDA-Public Use
  Company Number: KR-BAYER-2013-042809

PATIENT
  Age: 49 Year
  Sex: Male
  Weight: 65.5 kg

DRUGS (5)
  1. REGORAFENIB [Suspect]
     Indication: GASTROINTESTINAL STROMAL CANCER
     Dosage: 80 MG DAILY
     Dates: start: 20130321, end: 20130326
  2. REGORAFENIB [Suspect]
     Indication: GASTROINTESTINAL STROMAL CANCER
     Dosage: 160 MG DAILY
     Dates: start: 20130327, end: 20130402
  3. REGORAFENIB [Suspect]
     Indication: GASTROINTESTINAL STROMAL CANCER
     Dosage: 120 MG DAILY
     Dates: start: 20130409, end: 20130410
  4. REGORAFENIB [Suspect]
     Indication: GASTROINTESTINAL STROMAL CANCER
     Dosage: UNK
     Dates: start: 20130411, end: 20130415
  5. NORVASC [Concomitant]
     Dosage: 5 MG, QD
     Dates: start: 20130327, end: 20130402

REACTIONS (3)
  - Altered state of consciousness [Recovering/Resolving]
  - Tumour haemorrhage [Fatal]
  - Altered state of consciousness [Fatal]
